FAERS Safety Report 15013126 (Version 3)
Quarter: 2018Q3

REPORT INFORMATION
  Report Type: Report from Study
  Country: US (occurrence: US)
  Receive Date: 20180614
  Receipt Date: 20180910
  Transmission Date: 20181010
  Serious: Yes (Hospitalization, Other)
  Sender: FDA-Public Use
  Company Number: US-SHIRE-US201821523

PATIENT
  Sex: Female

DRUGS (1)
  1. GATTEX [Suspect]
     Active Substance: TEDUGLUTIDE\WATER
     Indication: PRODUCT USED FOR UNKNOWN INDICATION
     Dosage: 3.0, UNK, 1X/DAY:QD
     Route: 058

REACTIONS (6)
  - Drug dose omission [Unknown]
  - Upper-airway cough syndrome [Unknown]
  - Device related infection [Unknown]
  - Thrombosis [Recovering/Resolving]
  - Haematoma [Unknown]
  - Pyrexia [Unknown]
